FAERS Safety Report 4576939-3 (Version None)
Quarter: 2005Q1

REPORT INFORMATION
  Report Type: 
  Country: None (occurrence: None)
  Receive Date: 20050208
  Receipt Date: 20050131
  Transmission Date: 20050727
  Serious: Yes (Disabling, Other)
  Sender: FDA-Public Use
  Company Number: 2005008379

PATIENT
  Sex: Female
  Weight: 91.6266 kg

DRUGS (8)
  1. NEURONTIN [Suspect]
     Indication: NEUROPATHY
     Dosage: 100 MG (100 MG, 1 IN 1D)
  2. OXYCODONE HCL [Concomitant]
  3. LORAZEPAM [Concomitant]
  4. ESCITALOPRAM (ESCITALOPRAM) [Concomitant]
  5. ATENOLOL [Concomitant]
  6. RABEPRAZOLE SODIUM [Concomitant]
  7. THYROID TAB [Concomitant]
  8. LIDOCAINE HYDROCHLORIDE [Concomitant]

REACTIONS (8)
  - ANEURYSM [None]
  - DISEASE PROGRESSION [None]
  - FATIGUE [None]
  - FEELING ABNORMAL [None]
  - GASTROENTERITIS VIRAL [None]
  - MOVEMENT DISORDER [None]
  - NEUROPATHY [None]
  - VISUAL ACUITY REDUCED [None]
